FAERS Safety Report 9790813 (Version 4)
Quarter: 2014Q2

REPORT INFORMATION
  Report Type: Report from Study
  Country: US (occurrence: US)
  Receive Date: 20131231
  Receipt Date: 20140506
  Transmission Date: 20141212
  Serious: Yes (Hospitalization, Disabling, Other)
  Sender: FDA-Public Use
  Company Number: PHEH2013US023837

PATIENT
  Age: 70 Year
  Sex: Female
  Weight: 42.18 kg

DRUGS (7)
  1. EXELON PATCH [Suspect]
     Indication: DEMENTIA WITH LEWY BODIES
     Dosage: 4.6 MG, DAILY
     Route: 062
     Dates: start: 20100302
  2. EXELON PATCH [Suspect]
     Indication: PARKINSONISM
     Dosage: 9.5 MG, DAILY
     Route: 062
  3. EXELON PATCH [Suspect]
     Dosage: 13.3 MG, DAILY
     Route: 062
  4. EXELON PATCH [Suspect]
     Dosage: 9.5 MG, DAILY
     Route: 062
  5. EXELON PATCH [Suspect]
     Dosage: 4.6 MG, DAILY
     Route: 062
  6. SINEMET [Concomitant]
     Indication: PARKINSONISM
     Dosage: UNK UKN, 2 UKN, (25/11) DAILY
     Route: 048
  7. NAMENDA [Concomitant]
     Indication: MEMORY IMPAIRMENT
     Dosage: UNK UKN, UNK
     Route: 048

REACTIONS (6)
  - Fluid intake reduced [Unknown]
  - Dehydration [Unknown]
  - Weight decreased [Not Recovered/Not Resolved]
  - Urinary retention [Unknown]
  - Urinary tract infection [Recovered/Resolved]
  - Decreased appetite [Unknown]
